FAERS Safety Report 7389431-8 (Version None)
Quarter: 2011Q2

REPORT INFORMATION
  Report Type: 
  Country: None (occurrence: None)
  Receive Date: 20110401
  Receipt Date: 20110317
  Transmission Date: 20111010
  Serious: Yes (Hospitalization)
  Sender: FDA-Public Use
  Company Number: DE-ACTELION-A-US2011-46981

PATIENT

DRUGS (1)
  1. VENTAVIS [Suspect]
     Dosage: 2.5 UG, QID
     Route: 055
     Dates: start: 20101012

REACTIONS (1)
  - BLOOD LACTATE DEHYDROGENASE INCREASED [None]
